FAERS Safety Report 5302397-7 (Version None)
Quarter: 2007Q2

REPORT INFORMATION
  Report Type: 
  Country: None (occurrence: None)
  Receive Date: 20070413
  Receipt Date: 20070402
  Transmission Date: 20071010
  Serious: Yes (Other)
  Sender: FDA-Public Use
  Company Number: 2007RR-06710

PATIENT
  Age: 54 Year
  Sex: Male

DRUGS (2)
  1. SIMVASTATIN [Suspect]
     Indication: BLOOD CHOLESTEROL INCREASED
     Dosage: 20 MG, NIGHT
  2. LEVOTHYROXINE SODIUM [Concomitant]

REACTIONS (4)
  - COMPARTMENT SYNDROME [None]
  - MUSCLE NECROSIS [None]
  - NECROSIS ISCHAEMIC [None]
  - VASCULAR OCCLUSION [None]
